FAERS Safety Report 15550838 (Version 8)
Quarter: 2021Q1

REPORT INFORMATION
  Report Type: Spontaneous
  Country: IN (occurrence: IN)
  Receive Date: 20181025
  Receipt Date: 20210303
  Transmission Date: 20210419
  Serious: Yes (Hospitalization, Other)
  Sender: FDA-Public Use
  Company Number: IN-PFIZER INC-2018431456

PATIENT
  Age: 28 Year
  Sex: Female

DRUGS (2)
  1. AMLODIPINE BESILATE [Suspect]
     Active Substance: AMLODIPINE BESYLATE
     Dosage: 60 DF, UNK (MLODIPINE 5 MG (60 TABLETS)
  2. TELMISARTAN. [Interacting]
     Active Substance: TELMISARTAN
     Dosage: 30 DF, UNK (40 MG (30 TABLETS))

REACTIONS (6)
  - Drug interaction [Unknown]
  - Acute kidney injury [Unknown]
  - Shock [Unknown]
  - Metabolic acidosis [Unknown]
  - Vasoplegia syndrome [Unknown]
  - Overdose [Unknown]
